FAERS Safety Report 4801664-0 (Version None)
Quarter: 2005Q4

REPORT INFORMATION
  Report Type: 
  Country: None (occurrence: None)
  Receive Date: 20051011
  Receipt Date: 20050929
  Transmission Date: 20060501
  Serious: Yes (Hospitalization)
  Sender: FDA-Public Use
  Company Number: 213315

PATIENT
  Age: 66 Year
  Sex: Female
  Weight: 82 kg

DRUGS (20)
  1. RITUXIMAB (RITUXIMAB) CONC FOR SOLUTION FOR INFUSION [Suspect]
     Indication: RHEUMATOID ARTHRITIS
     Dosage: 1000 MG, DAYS 1+15, INTRAVENOUS
     Route: 042
     Dates: start: 20041117, end: 20041201
  2. METHYLPREDNISOLONE [Suspect]
     Indication: RHEUMATOID ARTHRITIS
     Dosage: 100 MG, DAYS 1+15, INTRAVENOUS
     Route: 042
     Dates: start: 20041117, end: 20041201
  3. PREDNISONE [Suspect]
     Indication: RHEUMATOID ARTHRITIS
     Dosage: ORAL
     Route: 048
     Dates: start: 20041118, end: 20041130
  4. METHOTREXATE [Concomitant]
  5. SIMVASTATIN [Concomitant]
  6. LEVOTHYROXINE SODIUM [Concomitant]
  7. ASPIRIN [Concomitant]
  8. FOSAMAX [Concomitant]
  9. VICODIN (HYDROCODONE BITARTRATE, ACETAMINOPHEN) [Concomitant]
  10. OXYBUTYNIN (OXYBUTYNIN CHLORIDE) [Concomitant]
  11. ATENOLOL [Concomitant]
  12. IBUPROFEN [Concomitant]
  13. ESOMEPRAZOLE (ESOMEPRAZOLE MAGNESIUM) [Concomitant]
  14. PREDNISONE [Concomitant]
  15. MULTIVITAMIN (MULTIVITAMINS  NOS) [Concomitant]
  16. VITAMIN C (ASCORBIC ACID) [Concomitant]
  17. VITAMIN E [Concomitant]
  18. GLUCOSAMINE/CHONDROITIN (GLUCOSAMINE, CHONDROITIN SULFATE) [Concomitant]
  19. FLAXSEED OIL (LINSEED) [Concomitant]
  20. PROZAC [Concomitant]

REACTIONS (11)
  - BRAIN OEDEMA [None]
  - CEREBRAL HAEMATOMA [None]
  - FALL [None]
  - HEAD INJURY [None]
  - HEMIPARESIS [None]
  - HEPATIC NEOPLASM [None]
  - LUNG NEOPLASM [None]
  - MICROANGIOPATHY [None]
  - OLIGODENDROGLIOMA [None]
  - SHOULDER PAIN [None]
  - SINUS DISORDER [None]
